FAERS Safety Report 8092867-3 (Version None)
Quarter: 2012Q1

REPORT INFORMATION
  Report Type: 
  Country: None (occurrence: None)
  Receive Date: 20120128
  Receipt Date: 20110726
  Transmission Date: 20120608
  Serious: No
  Sender: FDA-Public Use
  Company Number: US-ABBOTT-11P-163-0841809-00

PATIENT
  Age: 57 Year
  Sex: Female

DRUGS (4)
  1. LABETALOL HCL [Concomitant]
     Indication: HYPERTENSION
  2. VIT D3 [Concomitant]
     Indication: VITAMIN SUPPLEMENTATION
  3. FISH OIL [Concomitant]
     Indication: PRODUCT USED FOR UNKNOWN INDICATION
  4. HUMIRA [Suspect]
     Indication: RHEUMATOID ARTHRITIS
     Dates: start: 20110501

REACTIONS (2)
  - RASH ERYTHEMATOUS [None]
  - INDURATION [None]
